FAERS Safety Report 17096684 (Version 1)
Quarter: 2019Q4

REPORT INFORMATION
  Report Type: Spontaneous
  Country: US (occurrence: US)
  Receive Date: 20191202
  Receipt Date: 20191202
  Transmission Date: 20200122
  Serious: Yes (Death, Hospitalization, Other)
  Sender: FDA-Public Use
  Company Number: US-AUROBINDO-AUR-APL-2019-074681

PATIENT
  Age: 65 Year
  Sex: Female

DRUGS (5)
  1. CYCLOPHOSPHAMIDE. [Suspect]
     Active Substance: CYCLOPHOSPHAMIDE
     Indication: BLASTIC PLASMACYTOID DENDRITIC CELL NEOPLASIA
     Dosage: UNK
     Route: 065
  2. VINCRISTINE SULFATE. [Suspect]
     Active Substance: VINCRISTINE SULFATE
     Indication: BLASTIC PLASMACYTOID DENDRITIC CELL NEOPLASIA
     Dosage: UNK
     Route: 065
  3. DOXORUBICIN [Suspect]
     Active Substance: DOXORUBICIN
     Indication: BLASTIC PLASMACYTOID DENDRITIC CELL NEOPLASIA
     Dosage: UNK
     Route: 065
  4. METHOTREXATE. [Suspect]
     Active Substance: METHOTREXATE
     Indication: BLASTIC PLASMACYTOID DENDRITIC CELL NEOPLASIA
     Dosage: UNK
     Route: 037
  5. DEXAMETHASONE. [Suspect]
     Active Substance: DEXAMETHASONE
     Indication: BLASTIC PLASMACYTOID DENDRITIC CELL NEOPLASIA
     Dosage: UNK
     Route: 065

REACTIONS (15)
  - Cardiopulmonary failure [Fatal]
  - Disseminated intravascular coagulation [Unknown]
  - Enlarged uvula [Recovered/Resolved]
  - Thrombocytopenia [Unknown]
  - Respiratory syncytial virus infection [Unknown]
  - Product use in unapproved indication [Unknown]
  - Swelling face [Recovered/Resolved]
  - Multiple organ dysfunction syndrome [Fatal]
  - Cellulitis [Unknown]
  - Anaemia [Unknown]
  - Pulmonary oedema [Unknown]
  - Febrile neutropenia [Unknown]
  - Leukocytosis [Unknown]
  - Atrial fibrillation [Unknown]
  - General physical health deterioration [Unknown]
